FAERS Safety Report 6719137-7 (Version None)
Quarter: 2010Q2

REPORT INFORMATION
  Report Type: 
  Country: None (occurrence: None)
  Receive Date: 20100511
  Receipt Date: 20100430
  Transmission Date: 20101027
  Serious: No
  Sender: FDA-Public Use
  Company Number: IT-NOVOPROD-306809

PATIENT
  Sex: Male
  Weight: 105 kg

DRUGS (6)
  1. LIRAGLUTIDE FLEXPEN [Suspect]
     Indication: TYPE 2 DIABETES MELLITUS
     Dosage: 1.8 MG, QD
     Route: 058
     Dates: start: 20090716
  2. TRIATEC                            /00116401/ [Concomitant]
     Dosage: UNK
     Dates: start: 20020101
  3. TRIATEC HCT [Concomitant]
     Dosage: UNK
     Dates: start: 20020101
  4. NORVASC [Concomitant]
     Dosage: UNK
     Dates: start: 20020101
  5. ASPIRIN [Concomitant]
     Dosage: UNK
     Dates: start: 20090101
  6. METFORMIN [Concomitant]
     Indication: TYPE 2 DIABETES MELLITUS
     Dosage: 2000 MG, QD
     Route: 048
     Dates: start: 20020101

REACTIONS (1)
  - LIPASE INCREASED [None]
